FAERS Safety Report 8073019-X (Version None)
Quarter: 2011Q4

REPORT INFORMATION
  Report Type: 
  Country: None (occurrence: None)
  Receive Date: 20111221
  Receipt Date: 20110425
  Transmission Date: 20120403
  Serious: Yes (Other)
  Sender: FDA-Public Use
  Company Number: PHHY2008US37004

PATIENT
  Age: 3 Year
  Sex: Male
  Weight: 14.7 kg

DRUGS (5)
  1. EXJADE [Suspect]
     Indication: HAEMOSIDEROSIS
     Dosage: 250 MG, QD 20 MG/KG, ORAL ; 150 MG, BID (20 MG/KG/D), ORAL ; 375 MG, QD (20 MG/KG), ORAL
     Route: 048
     Dates: start: 20080401, end: 20080801
  2. EXJADE [Suspect]
     Indication: HAEMOSIDEROSIS
     Dosage: 250 MG, QD 20 MG/KG, ORAL ; 150 MG, BID (20 MG/KG/D), ORAL ; 375 MG, QD (20 MG/KG), ORAL
     Route: 048
     Dates: start: 20080201, end: 20080401
  3. EXJADE [Suspect]
     Indication: HAEMOSIDEROSIS
     Dosage: 250 MG, QD 20 MG/KG, ORAL ; 150 MG, BID (20 MG/KG/D), ORAL ; 375 MG, QD (20 MG/KG), ORAL
     Route: 048
     Dates: start: 20080801, end: 20080901
  4. FLINTSTONE VITAMINS W/IRON (FERROUS FUMARATE, VITAMINS NOS) [Concomitant]
  5. FOLIC ACID [Concomitant]

REACTIONS (3)
  - ALANINE AMINOTRANSFERASE INCREASED [None]
  - ABDOMINAL PAIN [None]
  - LIVER FUNCTION TEST ABNORMAL [None]
